FAERS Safety Report 7407821-1 (Version None)
Quarter: 2011Q2

REPORT INFORMATION
  Report Type: 
  Country: None (occurrence: None)
  Receive Date: 20110408
  Receipt Date: 20110408
  Transmission Date: 20111010
  Serious: Yes (Death)
  Sender: FDA-Public Use
  Company Number: None

PATIENT
  Sex: Female
  Weight: 45.3597 kg

DRUGS (1)
  1. HYDROXYCLOROQUINE 200 MG [Suspect]
     Indication: RHEUMATOID ARTHRITIS
     Dosage: 200 MG DAILY PO
     Route: 048

REACTIONS (1)
  - HEPATITIS FULMINANT [None]
